FAERS Safety Report 5446231-3 (Version None)
Quarter: 2007Q3

REPORT INFORMATION
  Report Type: 
  Country: None (occurrence: None)
  Receive Date: 20070907
  Receipt Date: 20070828
  Transmission Date: 20080115
  Serious: Yes (Death, Other)
  Sender: FDA-Public Use
  Company Number: US-ABBOTT-07P-163-0375462-00

PATIENT
  Sex: Female
  Weight: 70.824 kg

DRUGS (22)
  1. HUMIRA [Suspect]
     Indication: RHEUMATOID ARTHRITIS
     Route: 058
     Dates: start: 20040924, end: 20070101
  2. INFLUENZA VIRUS VACCINE POLYVALENT [Concomitant]
     Indication: DRUG USE FOR UNKNOWN INDICATION
     Route: 058
     Dates: start: 20041123
  3. CIPROFLOXACIN [Concomitant]
     Indication: DRUG USE FOR UNKNOWN INDICATION
     Dates: start: 20061201
  4. ONDANSETRON [Concomitant]
     Indication: DRUG USE FOR UNKNOWN INDICATION
  5. AMOXICILLIN [Concomitant]
     Indication: DRUG USE FOR UNKNOWN INDICATION
     Dates: start: 20051122
  6. PREDNISONE [Concomitant]
     Indication: DRUG USE FOR UNKNOWN INDICATION
     Dates: start: 19991230
  7. PREDNISONE [Concomitant]
  8. PREDNISONE [Concomitant]
     Dates: start: 20040526
  9. PREDNISONE [Concomitant]
     Dates: start: 20040601
  10. PREDNISONE [Concomitant]
     Dates: start: 20040729
  11. PREDNISONE [Concomitant]
  12. PREDNISONE [Concomitant]
     Dates: start: 20040802
  13. PREDNISONE [Concomitant]
     Dates: start: 20040816
  14. PREDNISONE [Concomitant]
     Dates: start: 20041001
  15. PREDNISONE [Concomitant]
     Dates: start: 20060113
  16. PREDNISONE [Concomitant]
     Dates: start: 20061201
  17. METHOTREXATE [Concomitant]
     Indication: DRUG USE FOR UNKNOWN INDICATION
     Dates: start: 19991230
  18. METHOTREXATE [Concomitant]
     Dates: start: 20040514
  19. METHOTREXATE [Concomitant]
     Dates: start: 20040813
  20. METHOTREXATE [Concomitant]
     Dates: start: 20051026
  21. METHOTREXATE [Concomitant]
     Dates: start: 20060405
  22. METHOTREXATE [Concomitant]

REACTIONS (13)
  - ADVERSE DRUG REACTION [None]
  - ARTHRALGIA [None]
  - ARTHRITIS INFECTIVE [None]
  - BRONCHOPNEUMONIA [None]
  - BURNING SENSATION [None]
  - COUGH [None]
  - HAEMATEMESIS [None]
  - JOINT INJURY [None]
  - MENINGITIS [None]
  - NASOPHARYNGITIS [None]
  - PNEUMONIA STREPTOCOCCAL [None]
  - SEPSIS [None]
  - SINUSITIS [None]
